FAERS Safety Report 18955162 (Version 3)
Quarter: 2021Q2

REPORT INFORMATION
  Report Type: Spontaneous
  Country: JP (occurrence: JP)
  Receive Date: 20210301
  Receipt Date: 20210520
  Transmission Date: 20210717
  Serious: Yes (Death, Hospitalization, Other)
  Sender: FDA-Public Use
  Company Number: JP-ROCHE-2779756

PATIENT
  Age: 47 Year
  Sex: Male
  Weight: 82 kg

DRUGS (4)
  1. ENTECAVIR MONOHYDRATE [Concomitant]
     Active Substance: ENTECAVIR
     Dates: start: 20190819
  2. AMLODIPINE BESILATE [Concomitant]
     Active Substance: AMLODIPINE BESYLATE
     Dates: start: 20200406
  3. AVASTIN [Suspect]
     Active Substance: BEVACIZUMAB
     Indication: HEPATOCELLULAR CARCINOMA
     Route: 041
     Dates: start: 20201216, end: 20210106
  4. TECENTRIQ [Suspect]
     Active Substance: ATEZOLIZUMAB
     Indication: HEPATOCELLULAR CARCINOMA
     Route: 041
     Dates: start: 20201216, end: 20210106

REACTIONS (5)
  - Diarrhoea [Recovered/Resolved]
  - Liver carcinoma ruptured [Unknown]
  - Tumour haemorrhage [Fatal]
  - Proteinuria [Unknown]
  - Disease progression [Fatal]

NARRATIVE: CASE EVENT DATE: 20201226
